FAERS Safety Report 5143613-4 (Version None)
Quarter: 2006Q4

REPORT INFORMATION
  Report Type: 
  Country: None (occurrence: None)
  Receive Date: 20061103
  Receipt Date: 20061031
  Transmission Date: 20070319
  Serious: Yes (Death, Hospitalization)
  Sender: FDA-Public Use
  Company Number: NO-NOVOPROD-258160

PATIENT
  Age: 66 Year
  Sex: Male

DRUGS (2)
  1. ACTRAPID [Suspect]
     Indication: DIABETES MELLITUS INSULIN-DEPENDENT
     Dosage: 7-8 UNITS
     Dates: start: 19880101
  2. INSULATARD NPH HUMAN [Suspect]
     Indication: DIABETES MELLITUS INSULIN-DEPENDENT
     Dosage: 8 IU, QD
     Dates: start: 19880101

REACTIONS (3)
  - BRAIN DAMAGE [None]
  - HYPOGLYCAEMIC COMA [None]
  - PNEUMONIA [None]
